FAERS Safety Report 10649910 (Version 2)
Quarter: 2015Q3

REPORT INFORMATION
  Report Type: Spontaneous
  Country: US (occurrence: US)
  Receive Date: 20141212
  Receipt Date: 20150819
  Transmission Date: 20151125
  Serious: No
  Sender: FDA-Public Use
  Company Number: US-GILEAD-2014-0126473

PATIENT
  Age: 53 Year
  Sex: Female

DRUGS (5)
  1. LASIX [Concomitant]
     Active Substance: FUROSEMIDE
  2. LETAIRIS [Suspect]
     Active Substance: AMBRISENTAN
     Indication: PRODUCT USED FOR UNKNOWN INDICATION
     Dosage: 5 MG, QD
     Route: 065
     Dates: start: 20141105
  3. FLOLAN [Concomitant]
     Active Substance: EPOPROSTENOL SODIUM
  4. ADCIRCA [Concomitant]
     Active Substance: TADALAFIL
  5. TORSEMIDE. [Concomitant]
     Active Substance: TORSEMIDE

REACTIONS (3)
  - Oedema [Recovering/Resolving]
  - Abdominal distension [Recovering/Resolving]
  - Dyspnoea [Unknown]
